FAERS Safety Report 18574927 (Version 1)
Quarter: 2020Q4

REPORT INFORMATION
  Report Type: Spontaneous
  Country: CN (occurrence: CN)
  Receive Date: 20201203
  Receipt Date: 20201203
  Transmission Date: 20210114
  Serious: Yes (Hospitalization)
  Sender: FDA-Public Use
  Company Number: CN-PFIZER INC-2020471860

PATIENT
  Age: 74 Year
  Sex: Female

DRUGS (3)
  1. ZYVOX [Suspect]
     Active Substance: LINEZOLID
     Indication: INFECTION
     Dosage: 0.6 KG, 1X/DAY
     Route: 041
     Dates: start: 20201114, end: 20201122
  2. MEROPENEM. [Concomitant]
     Active Substance: MEROPENEM
     Dosage: 1 G, 3X/DAY (1G, Q8H)
     Dates: start: 20201112, end: 20201123
  3. MOXIFLOXACIN. [Concomitant]
     Active Substance: MOXIFLOXACIN
     Dosage: 0.4 G
     Dates: start: 20201106, end: 20201114

REACTIONS (7)
  - Pruritus [Unknown]
  - Off label use [Unknown]
  - Rash [Recovering/Resolving]
  - Skin mass [Unknown]
  - Allergic reaction to excipient [Recovering/Resolving]
  - Haemoglobin decreased [Unknown]
  - Platelet count increased [Unknown]

NARRATIVE: CASE EVENT DATE: 202011
